FAERS Safety Report 12381759 (Version 2)
Quarter: 2016Q2

REPORT INFORMATION
  Report Type: Spontaneous
  Country: US (occurrence: US)
  Receive Date: 20160518
  Receipt Date: 20160524
  Transmission Date: 20160815
  Serious: Yes (Hospitalization, Other)
  Sender: FDA-Public Use
  Company Number: US-GLAXOSMITHKLINE-US2016069564

PATIENT
  Sex: Female

DRUGS (12)
  1. COREG CR [Suspect]
     Active Substance: CARVEDILOL PHOSPHATE
     Dosage: 40 MG, U
     Dates: start: 2002
  2. ULTRACET [Concomitant]
     Active Substance: ACETAMINOPHEN\TRAMADOL HYDROCHLORIDE
  3. METFORMIN [Concomitant]
     Active Substance: METFORMIN HYDROCHLORIDE
  4. PERCOCET [Concomitant]
     Active Substance: ACETAMINOPHEN\OXYCODONE HYDROCHLORIDE
  5. RELAFEN [Concomitant]
     Active Substance: NABUMETONE
  6. COREG CR [Suspect]
     Active Substance: CARVEDILOL PHOSPHATE
     Indication: HYPERTENSION
     Dosage: 40 MG, BID
     Dates: start: 2002
  7. PEPCID [Concomitant]
     Active Substance: FAMOTIDINE
  8. XANAX [Concomitant]
     Active Substance: ALPRAZOLAM
  9. AMBIEN [Concomitant]
     Active Substance: ZOLPIDEM TARTRATE
  10. CATAFLAM [Concomitant]
     Active Substance: DICLOFENAC POTASSIUM
  11. MELATONIN [Concomitant]
     Active Substance: MELATONIN
  12. SYNTHROID [Concomitant]
     Active Substance: LEVOTHYROXINE SODIUM

REACTIONS (31)
  - Insomnia [Not Recovered/Not Resolved]
  - Hyperchlorhydria [Recovering/Resolving]
  - Walking aid user [Unknown]
  - Arthritis [Not Recovered/Not Resolved]
  - Spinal deformity [Unknown]
  - Abasia [Unknown]
  - Vomiting [Recovering/Resolving]
  - Diabetic neuropathy [Not Recovered/Not Resolved]
  - Sensory loss [Unknown]
  - Nerve compression [Unknown]
  - Suicidal ideation [Recovered/Resolved]
  - Spinal pain [Not Recovered/Not Resolved]
  - Ill-defined disorder [Unknown]
  - Osteoporosis [Not Recovered/Not Resolved]
  - Headache [Not Recovered/Not Resolved]
  - Underdose [Unknown]
  - Pain [Unknown]
  - Knee operation [Unknown]
  - Mouth haemorrhage [Recovered/Resolved]
  - Diabetes mellitus [Not Recovered/Not Resolved]
  - Chest pain [Unknown]
  - Swelling [Not Recovered/Not Resolved]
  - Decreased appetite [Not Recovered/Not Resolved]
  - Balance disorder [Unknown]
  - Arthropod bite [Recovered/Resolved]
  - Gait disturbance [Unknown]
  - Fibromyalgia [Not Recovered/Not Resolved]
  - Neuralgia [Not Recovered/Not Resolved]
  - Myelopathy [Unknown]
  - Neuropathy peripheral [Unknown]
  - Hypoaesthesia [Unknown]

NARRATIVE: CASE EVENT DATE: 2008
